FAERS Safety Report 4555280-9 (Version None)
Quarter: 2005Q1

REPORT INFORMATION
  Report Type: 
  Country: None (occurrence: None)
  Receive Date: 20041227
  Receipt Date: 20040819
  Transmission Date: 20050727
  Serious: No
  Sender: FDA-Public Use
  Company Number: US087856

PATIENT
  Age: 75 Year
  Sex: Male

DRUGS (13)
  1. ARANESP [Suspect]
     Indication: RENAL FAILURE CHRONIC
     Dosage: 40 MCG, 1 IN 2 WEEKS, SC
     Route: 058
     Dates: start: 20040714, end: 20040817
  2. ATENOLOL [Concomitant]
  3. ISOSORBIDE MONONITRATE [Concomitant]
  4. ROSUVASTATIN CALCIUM [Concomitant]
  5. FISH OIL [Concomitant]
  6. FUROSEMIDE [Concomitant]
  7. POTASSIUM [Concomitant]
  8. NIFEDIPINE [Concomitant]
  9. ALLOPURINOL [Concomitant]
  10. DEXAMETHASONE [Concomitant]
  11. MULTIVIT [Concomitant]
  12. ACETYLSALICYLIC ACID SRT [Concomitant]
  13. CLOPIDOGREL BISULFATE [Concomitant]

REACTIONS (1)
  - INJECTION SITE REACTION [None]
